FAERS Safety Report 18767932 (Version 2)
Quarter: 2021Q1

REPORT INFORMATION
  Report Type: Spontaneous
  Country: GB (occurrence: GB)
  Receive Date: 20210121
  Receipt Date: 20210226
  Transmission Date: 20210419
  Serious: Yes (Other)
  Sender: FDA-Public Use
  Company Number: GB-PFIZER INC-2021027146

PATIENT
  Sex: Male

DRUGS (4)
  1. SERTRALINE HCL [Suspect]
     Active Substance: SERTRALINE HYDROCHLORIDE
     Dosage: 100 MG, MANE (ONCE A DAY IN THE MORNING)
  2. CLOZARIL [Suspect]
     Active Substance: CLOZAPINE
     Dosage: 200 MG, DAILY (AT NIGHT)
     Route: 048
     Dates: end: 20210105
  3. PALIPERIDONE. [Concomitant]
     Active Substance: PALIPERIDONE
     Dosage: UNK
  4. CLOZARIL [Suspect]
     Active Substance: CLOZAPINE
     Indication: SCHIZOPHRENIA
     Dosage: 300 MG, DAILY (AT NIGHT)
     Route: 048
     Dates: start: 20140508

REACTIONS (8)
  - Constipation [Not Recovered/Not Resolved]
  - Nausea [Not Recovered/Not Resolved]
  - Product dose omission issue [Unknown]
  - Intestinal obstruction [Unknown]
  - Gastritis viral [Unknown]
  - Weight decreased [Not Recovered/Not Resolved]
  - Vomiting [Recovered/Resolved]
  - Gastroenteritis viral [Unknown]

NARRATIVE: CASE EVENT DATE: 2020
